FAERS Safety Report 22305186 (Version 1)
Quarter: 2023Q2

REPORT INFORMATION
  Report Type: Spontaneous
  Country: US (occurrence: None)
  Receive Date: 20230510
  Receipt Date: 20230510
  Transmission Date: 20230722
  Serious: No
  Sender: FDA-Public Use
  Company Number: 2023A107883

PATIENT
  Sex: Female

DRUGS (2)
  1. SYMBICORT [Suspect]
     Active Substance: BUDESONIDE\FORMOTEROL FUMARATE DIHYDRATE
     Route: 055
  2. BREZTRI [Suspect]
     Active Substance: BUDESONIDE\FORMOTEROL\GLYCOPYRROLATE
     Route: 055

REACTIONS (7)
  - Dyspnoea [Unknown]
  - Coating in mouth [Unknown]
  - Lung disorder [Unknown]
  - Choking sensation [Unknown]
  - Sensation of foreign body [Unknown]
  - Dysphonia [Unknown]
  - Oropharyngeal discomfort [Unknown]
